FAERS Safety Report 9058520 (Version 1)
Quarter: 2013Q1

REPORT INFORMATION
  Report Type: Spontaneous
  Country: US (occurrence: US)
  Receive Date: 20130211
  Receipt Date: 20130211
  Transmission Date: 20140127
  Serious: Yes (Other)
  Sender: FDA-Public Use
  Company Number: US-JNJFOC-20130200965

PATIENT
  Sex: Male
  Weight: 81.65 kg

DRUGS (3)
  1. TYLENOL W/CODEINE [Suspect]
     Indication: MIGRAINE
     Route: 048
     Dates: start: 2012, end: 2012
  2. TYLENOL W/CODEINE [Suspect]
     Indication: PAIN
     Route: 048
     Dates: start: 2012, end: 2012
  3. ACETAMINOPHEN WITH CODEINE [Suspect]
     Indication: PAIN
     Route: 048
     Dates: start: 201212

REACTIONS (6)
  - Weight decreased [Not Recovered/Not Resolved]
  - Eating disorder [Not Recovered/Not Resolved]
  - Insomnia [Not Recovered/Not Resolved]
  - Pain [Not Recovered/Not Resolved]
  - Anger [Not Recovered/Not Resolved]
  - Performance status decreased [Not Recovered/Not Resolved]
